FAERS Safety Report 4472349-8 (Version None)
Quarter: 2004Q3

REPORT INFORMATION
  Report Type: 
  Country: None (occurrence: None)
  Receive Date: 20040917
  Receipt Date: 20040718
  Transmission Date: 20050211
  Serious: No
  Sender: FDA-Public Use
  Company Number: US-JNJFOC-20040705582

PATIENT
  Sex: Female

DRUGS (1)
  1. ORTHO EVRA [Suspect]
     Indication: CONTRACEPTION
     Dosage: 1 DOSE(S), 3 IN 4 WEEK, TRANSDERMAL
     Route: 062
     Dates: start: 20040704

REACTIONS (4)
  - APPLICATION SITE REACTION [None]
  - DYSFUNCTIONAL UTERINE BLEEDING [None]
  - UTERINE SPASM [None]
  - VAGINAL DISCHARGE [None]
